FAERS Safety Report 26073193 (Version 2)
Quarter: 2025Q4

REPORT INFORMATION
  Report Type: Spontaneous
  Country: US (occurrence: US)
  Receive Date: 20251121
  Receipt Date: 20251127
  Transmission Date: 20260117
  Serious: No
  Sender: LEO PHARM
  Company Number: US-LEO Pharma-384216

PATIENT
  Age: 52 Year
  Sex: Male

DRUGS (1)
  1. ADBRY [Suspect]
     Active Substance: TRALOKINUMAB-LDRM
     Indication: Product used for unknown indication
     Dosage: INJECT 1 PEN SUBCUTANEOUSLY EVERY 2 WEEKS
     Route: 058

REACTIONS (1)
  - Drug ineffective [Unknown]
